FAERS Safety Report 6072940-1 (Version None)
Quarter: 2009Q1

REPORT INFORMATION
  Report Type: 
  Country: None (occurrence: None)
  Receive Date: 20090206
  Receipt Date: 20090123
  Transmission Date: 20090719
  Serious: Yes (Other)
  Sender: FDA-Public Use
  Company Number: 2008S1019530

PATIENT
  Age: 58 Year
  Sex: Female

DRUGS (8)
  1. LORAZEPAM [Suspect]
     Indication: ANXIETY
     Dosage: 0.25 MG; AS NEEDED; ORAL
     Route: 048
     Dates: start: 20071201, end: 20080601
  2. SYNTHROID [Concomitant]
  3. MAGNESIUM SULFATE [Concomitant]
  4. PRILOSEC [Concomitant]
  5. DIOVAN [Concomitant]
  6. TOPROL-XL [Concomitant]
  7. CLIMARA [Concomitant]
  8. ALEVE [Concomitant]

REACTIONS (23)
  - AGITATION [None]
  - ANXIETY [None]
  - ARTHRALGIA [None]
  - BLOOD MAGNESIUM DECREASED [None]
  - DEPRESSION [None]
  - DISTURBANCE IN ATTENTION [None]
  - DIZZINESS [None]
  - DRUG WITHDRAWAL SYNDROME [None]
  - DYSKINESIA [None]
  - FEAR [None]
  - FEELING ABNORMAL [None]
  - FEELING JITTERY [None]
  - HEADACHE [None]
  - HEART RATE INCREASED [None]
  - PANCREATITIS [None]
  - PANIC ATTACK [None]
  - SEDATION [None]
  - SOMNOLENCE [None]
  - STARING [None]
  - SUICIDAL IDEATION [None]
  - TREMOR [None]
  - VISION BLURRED [None]
  - VOMITING [None]
